FAERS Safety Report 6234320-5 (Version None)
Quarter: 2009Q2

REPORT INFORMATION
  Report Type: 
  Country: None (occurrence: None)
  Receive Date: 20090618
  Receipt Date: 20090609
  Transmission Date: 20091009
  Serious: Yes (Hospitalization, Other)
  Sender: FDA-Public Use
  Company Number: PHHY2009BR22832

PATIENT
  Age: 42 Year
  Sex: Female

DRUGS (4)
  1. EXFORGE [Suspect]
     Dosage: 1 DF (320/5 MG)/ DAY
     Route: 048
     Dates: start: 20070101
  2. SOMALGIN [Concomitant]
     Dosage: 1 DF (100 MG)/ DAY
     Route: 048
  3. LIPITOR [Concomitant]
     Dosage: 1 DF (20 MG)/ DAY
     Route: 048
  4. SELOZOK [Concomitant]
     Dosage: 1 DF (25 MG)/ DAY
     Route: 048

REACTIONS (4)
  - BLOOD PRESSURE ABNORMAL [None]
  - CARDIAC DISORDER [None]
  - HYPERSENSITIVITY [None]
  - HYSTERECTOMY [None]
